FAERS Safety Report 9254164 (Version 1)
Quarter: 2013Q1

REPORT INFORMATION
  Report Type: Spontaneous
  Country: US (occurrence: None)
  Receive Date: 20121211
  Receipt Date: 20121211
  Transmission Date: 20140127
  Serious: Yes (Hospitalization)
  Sender: FDA-Public Use
  Company Number: 1203USA01910

PATIENT
  Sex: Male

DRUGS (2)
  1. ISENTRESS [Suspect]
     Indication: HIV INFECTION
     Dosage: 400MG, BID, ORAL
     Route: 048
  2. ETRAVIRINE [Concomitant]
     Indication: HIV INFECTION

REACTIONS (2)
  - Rash [None]
  - Hypersensitivity [None]
